FAERS Safety Report 13657930 (Version 1)
Quarter: 2017Q2

REPORT INFORMATION
  Report Type: Spontaneous
  Country: TW (occurrence: TW)
  Receive Date: 20170616
  Receipt Date: 20170616
  Transmission Date: 20170830
  Serious: Yes (Other)
  Sender: FDA-Public Use
  Company Number: TW-ABBVIE-17P-153-2007352-00

PATIENT
  Age: 79 Year
  Sex: Female

DRUGS (3)
  1. LORATADINE. [Concomitant]
     Active Substance: LORATADINE
     Indication: PRODUCT USED FOR UNKNOWN INDICATION
  2. VIEKIRAX [Suspect]
     Active Substance: OMBITASVIR\PARITAPREVIR\RITONAVIR
     Indication: HEPATITIS C
     Route: 048
     Dates: start: 20170602
  3. EXVIERA [Suspect]
     Active Substance: DASABUVIR
     Indication: HEPATITIS C
     Route: 048
     Dates: start: 20170602

REACTIONS (2)
  - Oedema [Unknown]
  - Hepatic cirrhosis [Unknown]

NARRATIVE: CASE EVENT DATE: 2017
